FAERS Safety Report 21379751 (Version 1)
Quarter: 2022Q3

REPORT INFORMATION
  Report Type: Spontaneous
  Country: US (occurrence: None)
  Receive Date: 20220923
  Receipt Date: 20220923
  Transmission Date: 20221027
  Serious: Yes (Life-Threatening, Hospitalization)
  Sender: FDA-Public Use
  Company Number: None

PATIENT
  Age: 62 Year
  Sex: Male

DRUGS (1)
  1. HYDROMORPHONE [Suspect]
     Active Substance: HYDROMORPHONE
     Indication: Pain
     Dosage: FREQUENCY : ONCE;?
     Route: 042
     Dates: start: 20220718, end: 20220718

REACTIONS (7)
  - Confusional state [None]
  - Dizziness [None]
  - Sedation [None]
  - Hypotension [None]
  - Bradycardia [None]
  - Somnolence [None]
  - Respiratory failure [None]

NARRATIVE: CASE EVENT DATE: 20220718
